FAERS Safety Report 22330759 (Version 1)
Quarter: 2023Q2

REPORT INFORMATION
  Report Type: Spontaneous
  Country: US (occurrence: None)
  Receive Date: 20230515
  Receipt Date: 20230515
  Transmission Date: 20230722
  Serious: Yes (Other)
  Sender: FDA-Public Use
  Company Number: None

PATIENT
  Age: 58 Year
  Sex: Female
  Weight: 53.1 kg

DRUGS (1)
  1. BIMATOPROST [Suspect]
     Active Substance: BIMATOPROST

REACTIONS (1)
  - Eyelids pruritus [None]

NARRATIVE: CASE EVENT DATE: 20230316
